FAERS Safety Report 16765578 (Version 1)
Quarter: 2019Q3

REPORT INFORMATION
  Report Type: Spontaneous
  Country: US (occurrence: US)
  Receive Date: 20190903
  Receipt Date: 20190903
  Transmission Date: 20191005
  Serious: Yes (Congenital Anomaly, Other)
  Sender: FDA-Public Use
  Company Number: US-LUPIN PHARMACEUTICALS INC.-2019-05570

PATIENT

DRUGS (1)
  1. OSELTAMIVIR [Suspect]
     Active Substance: OSELTAMIVIR
     Indication: INFLUENZA
     Dosage: UNK
     Route: 064

REACTIONS (5)
  - Fallot^s pentalogy [Unknown]
  - Congenital arterial malformation [Unknown]
  - Atrial septal defect [Unknown]
  - Fallot^s tetralogy [Unknown]
  - Foetal exposure during pregnancy [Unknown]
